FAERS Safety Report 14689945 (Version 1)
Quarter: 2018Q1

REPORT INFORMATION
  Report Type: Spontaneous
  Country: US (occurrence: US)
  Receive Date: 20180327
  Receipt Date: 20180327
  Transmission Date: 20180509
  Serious: Yes (Disabling, Other)
  Sender: FDA-Public Use
  Company Number: None

PATIENT
  Age: 55 Year
  Sex: Female

DRUGS (10)
  1. HUMIRA [Suspect]
     Active Substance: ADALIMUMAB
     Indication: RHEUMATOID ARTHRITIS
     Dosage: ?          QUANTITY:2 INJECTION(S);OTHER FREQUENCY:WEEKLY;?
     Route: 058
     Dates: start: 20171018, end: 20180207
  2. CARDIZEM [Concomitant]
     Active Substance: DILTIAZEM HYDROCHLORIDE
  3. FLEXERIL [Concomitant]
     Active Substance: CYCLOBENZAPRINE HYDROCHLORIDE
  4. SYNTHROID [Concomitant]
     Active Substance: LEVOTHYROXINE SODIUM
  5. ASA [Concomitant]
     Active Substance: ASPIRIN
  6. FLEXERIL [Concomitant]
     Active Substance: CYCLOBENZAPRINE HYDROCHLORIDE
  7. VIT B [Concomitant]
     Active Substance: VITAMIN B
  8. ROPINEROL [Concomitant]
  9. NEURONTIN [Concomitant]
     Active Substance: GABAPENTIN
  10. MTX [Concomitant]
     Active Substance: METHOTREXATE SODIUM

REACTIONS (11)
  - Influenza [None]
  - Psoriasis [None]
  - Tongue fungal infection [None]
  - Arthralgia [None]
  - Skin ulcer [None]
  - Fatigue [None]
  - Lymphadenopathy [None]
  - Nasal septum ulceration [None]
  - Epistaxis [None]
  - Urinary incontinence [None]
  - Myalgia [None]

NARRATIVE: CASE EVENT DATE: 20180207
